FAERS Safety Report 9822108 (Version 2)
Quarter: 2014Q1

REPORT INFORMATION
  Report Type: Spontaneous
  Country: CA (occurrence: CA)
  Receive Date: 20140116
  Receipt Date: 20140214
  Transmission Date: 20141002
  Serious: Yes (Life-Threatening, Hospitalization)
  Sender: FDA-Public Use
  Company Number: CA-GLAXOSMITHKLINE-A1018616A

PATIENT
  Sex: Male

DRUGS (15)
  1. VOTRIENT [Suspect]
     Indication: RENAL CANCER METASTATIC
     Dosage: 400MG PER DAY
     Route: 048
     Dates: start: 20121018, end: 201401
  2. VITAMIN B12 [Concomitant]
  3. IMODIUM [Concomitant]
  4. NITRO-DUR [Concomitant]
  5. AMIODARONE [Concomitant]
  6. FUROSEMIDE [Concomitant]
  7. DIGOXIN [Concomitant]
  8. METOPROLOL [Concomitant]
  9. OXAZEPAM [Concomitant]
  10. ISOSORBIDE [Concomitant]
  11. ECASA [Concomitant]
  12. RAMIPRIL [Concomitant]
  13. PLAVIX [Concomitant]
  14. ATORVASTATIN [Concomitant]
  15. PANTOPRAZOLE MAGNESIUM [Concomitant]

REACTIONS (9)
  - Myocardial infarction [Unknown]
  - Diarrhoea [Recovered/Resolved]
  - Vomiting [Recovered/Resolved]
  - Nausea [Unknown]
  - Decreased appetite [Unknown]
  - Influenza [Recovered/Resolved]
  - Laboratory test abnormal [Not Recovered/Not Resolved]
  - Asthenia [Not Recovered/Not Resolved]
  - General physical health deterioration [Unknown]
